FAERS Safety Report 21267301 (Version 1)
Quarter: 2022Q3

REPORT INFORMATION
  Report Type: Spontaneous
  Country: BR (occurrence: None)
  Receive Date: 20220829
  Receipt Date: 20220829
  Transmission Date: 20221026
  Serious: Yes (Other)
  Sender: FDA-Public Use
  Company Number: BR-ROCHE-3166574

PATIENT
  Age: 76 Year
  Sex: Female
  Weight: 47 kg

DRUGS (1)
  1. ACTEMRA [Suspect]
     Active Substance: TOCILIZUMAB
     Indication: COVID-19
     Route: 042
     Dates: start: 20210526, end: 20210526

REACTIONS (4)
  - Hepatic enzyme increased [Recovering/Resolving]
  - Hypertriglyceridaemia [Recovering/Resolving]
  - Renal impairment [Recovering/Resolving]
  - Off label use [Unknown]

NARRATIVE: CASE EVENT DATE: 20210610
